FAERS Safety Report 5196816-7 (Version None)
Quarter: 2007Q1

REPORT INFORMATION
  Report Type: 
  Country: None (occurrence: None)
  Receive Date: 20070103
  Receipt Date: 20061226
  Transmission Date: 20070707
  Serious: Yes (Hospitalization)
  Sender: FDA-Public Use
  Company Number: JP-JNJFOC-20061206680

PATIENT
  Sex: Female

DRUGS (3)
  1. REMICADE [Suspect]
     Indication: RHEUMATOID ARTHRITIS
     Dosage: 3 MG/KG; 8 INFUSIONS ON UNSPECIFIED DATES
     Route: 042
  2. RHEUMATREX [Suspect]
     Indication: RHEUMATOID ARTHRITIS
     Route: 048
  3. RIMATIL [Concomitant]
     Dosage: DAILY DOSE: 1 TAB
     Route: 048

REACTIONS (6)
  - INTERSTITIAL LUNG DISEASE [None]
  - JAUNDICE [None]
  - NAUSEA [None]
  - RASH GENERALISED [None]
  - TUBERCULOSIS [None]
  - VOMITING [None]
